FAERS Safety Report 20959041 (Version 1)
Quarter: 2022Q2

REPORT INFORMATION
  Report Type: Spontaneous
  Country: US (occurrence: US)
  Receive Date: 20220614
  Receipt Date: 20220614
  Transmission Date: 20220721
  Serious: Yes (Other)
  Sender: FDA-Public Use
  Company Number: US-PFIZER INC-2018129691

PATIENT
  Age: 26 Year
  Sex: Female

DRUGS (40)
  1. PREVACID 24 HR [Suspect]
     Active Substance: LANSOPRAZOLE
     Indication: Gastrooesophageal reflux disease
     Dosage: UNK
     Route: 048
     Dates: start: 199702, end: 201302
  2. PREVACID 24 HR [Suspect]
     Active Substance: LANSOPRAZOLE
     Dosage: UNK
     Route: 048
     Dates: start: 200307, end: 201705
  3. PREVACID 24 HR [Suspect]
     Active Substance: LANSOPRAZOLE
     Dosage: 15 MG, QD
     Route: 048
  4. NEXIUM I.V. [Suspect]
     Active Substance: ESOMEPRAZOLE SODIUM
     Indication: Gastrooesophageal reflux disease
     Dosage: UNK
     Route: 048
     Dates: start: 199702, end: 201302
  5. NEXIUM I.V. [Suspect]
     Active Substance: ESOMEPRAZOLE SODIUM
     Dosage: 40 MG, QD
     Route: 048
  6. NEXIUM I.V. [Suspect]
     Active Substance: ESOMEPRAZOLE SODIUM
     Dosage: 40 MG, QD
     Route: 048
     Dates: start: 200307, end: 201705
  7. NEXIUM 24HR [Suspect]
     Active Substance: ESOMEPRAZOLE MAGNESIUM
     Indication: Gastrooesophageal reflux disease
     Dosage: UNK
     Route: 048
     Dates: end: 201705
  8. NEXIUM 24HR [Suspect]
     Active Substance: ESOMEPRAZOLE MAGNESIUM
     Dosage: UNK
     Route: 048
     Dates: start: 199702, end: 201302
  9. NEXIUM 24HR [Suspect]
     Active Substance: ESOMEPRAZOLE MAGNESIUM
     Dosage: 20 MG, QD
     Route: 048
  10. PREVACID [Suspect]
     Active Substance: LANSOPRAZOLE
     Indication: Gastrooesophageal reflux disease
     Dosage: UNK
     Route: 065
     Dates: start: 199702, end: 201302
  11. PREVACID [Suspect]
     Active Substance: LANSOPRAZOLE
     Dosage: 40 MG, QD
     Route: 048
     Dates: start: 19970201, end: 20121212
  12. PREVACID [Suspect]
     Active Substance: LANSOPRAZOLE
     Dosage: 40 MG, QD
     Route: 065
  13. ESOMEPRAZOLE MAGNESIUM [Suspect]
     Active Substance: ESOMEPRAZOLE MAGNESIUM
     Indication: Product used for unknown indication
     Dosage: UNK
     Route: 048
  14. LANSOPRAZOLE [Suspect]
     Active Substance: LANSOPRAZOLE
     Indication: Product used for unknown indication
     Dosage: UNK
     Route: 048
  15. PROTONIX [Suspect]
     Active Substance: PANTOPRAZOLE SODIUM
     Indication: Gastrooesophageal reflux disease
     Dosage: UNK
     Route: 065
     Dates: start: 199702, end: 201302
  16. PROTONIX [Suspect]
     Active Substance: PANTOPRAZOLE SODIUM
     Dosage: UNK
     Route: 065
     Dates: start: 200307, end: 201705
  17. PROTONIX [Suspect]
     Active Substance: PANTOPRAZOLE SODIUM
     Dosage: 40 MG, QD
     Route: 048
     Dates: start: 20121212
  18. NEXIUM I.V. [Suspect]
     Active Substance: ESOMEPRAZOLE SODIUM
     Indication: Gastrooesophageal reflux disease
     Dosage: UNK
     Route: 042
  19. OMEPRAZOLE [Suspect]
     Active Substance: OMEPRAZOLE
     Indication: Gastrooesophageal reflux disease
     Dosage: 20 MG, QD
     Route: 048
     Dates: start: 20121218
  20. PRILOSEC [Suspect]
     Active Substance: OMEPRAZOLE MAGNESIUM
     Indication: Gastrooesophageal reflux disease
     Dosage: UNK
     Route: 048
     Dates: start: 199702, end: 201302
  21. PRILOSEC [Suspect]
     Active Substance: OMEPRAZOLE MAGNESIUM
     Dosage: UNK
     Route: 048
     Dates: start: 200307, end: 201705
  22. PRILOSEC [Suspect]
     Active Substance: OMEPRAZOLE MAGNESIUM
     Dosage: 20 MG, QD
     Route: 048
  23. PRILOSEC [Suspect]
     Active Substance: OMEPRAZOLE MAGNESIUM
     Dosage: 40 MG, QD
     Route: 048
  24. PRILOSEC [Suspect]
     Active Substance: OMEPRAZOLE MAGNESIUM
     Indication: Gastrooesophageal reflux disease
     Dosage: UNK
     Route: 048
     Dates: start: 199702, end: 201302
  25. PRILOSEC [Suspect]
     Active Substance: OMEPRAZOLE MAGNESIUM
     Dosage: UNK
     Route: 048
     Dates: start: 200307, end: 201705
  26. PRILOSEC [Suspect]
     Active Substance: OMEPRAZOLE MAGNESIUM
     Dosage: 20 MG, QD
     Route: 065
  27. PRILOSEC [Suspect]
     Active Substance: OMEPRAZOLE MAGNESIUM
     Dosage: UNK
     Route: 065
     Dates: start: 20121218
  28. PANTOPRAZOLE [Suspect]
     Active Substance: PANTOPRAZOLE
     Indication: Product used for unknown indication
     Dosage: UNK
     Route: 048
  29. ACIPHEX [Suspect]
     Active Substance: RABEPRAZOLE SODIUM
     Indication: Gastrooesophageal reflux disease
     Dosage: UNK
     Route: 048
  30. ACIPHEX SPRINKLE [Suspect]
     Active Substance: RABEPRAZOLE SODIUM
     Indication: Gastrooesophageal reflux disease
     Dosage: UNK
     Route: 065
  31. FOLIC ACID [Concomitant]
     Active Substance: FOLIC ACID
     Indication: Vitamin supplementation
     Dosage: UNK
     Dates: start: 201301, end: 201302
  32. LASIX [Concomitant]
     Active Substance: FUROSEMIDE
     Indication: Oedema
     Dosage: UNK
     Dates: start: 201212, end: 201302
  33. KLOR-CON [Concomitant]
     Active Substance: POTASSIUM CHLORIDE
     Indication: Hypokalaemia
     Dosage: UNK
     Dates: start: 20121212, end: 201302
  34. INDERAL [Concomitant]
     Active Substance: PROPRANOLOL HYDROCHLORIDE
     Indication: Hypertension
     Dosage: UNK
     Dates: start: 201212, end: 201302
  35. ALDACTONE [Concomitant]
     Active Substance: SPIRONOLACTONE
     Indication: Oedema
     Dosage: UNK
     Dates: start: 201212, end: 201302
  36. PROPRANOLOL [Concomitant]
     Active Substance: PROPRANOLOL HYDROCHLORIDE
     Indication: Hypertension
     Dosage: UNK
     Dates: start: 201212, end: 201302
  37. RITALIN [METHYLPHENIDATE HYDROCHLORIDE] [Concomitant]
     Indication: Attention deficit hyperactivity disorder
     Dosage: UNK
     Dates: start: 201212, end: 201302
  38. ALBUTEROL [Concomitant]
     Active Substance: ALBUTEROL
     Indication: Asthma
     Dosage: UNK
     Dates: start: 201301, end: 201302
  39. OXYCODONE [Concomitant]
     Active Substance: OXYCODONE
     Indication: Pain
     Dosage: UNK
     Dates: start: 201212, end: 201302
  40. CALCIUM CARBONATE\MAGNESIUM CARBONATE\MAGNESIUM TRISILICATE [Concomitant]
     Active Substance: CALCIUM CARBONATE\MAGNESIUM CARBONATE\MAGNESIUM TRISILICATE
     Indication: Antacid therapy
     Dosage: UNK, AS NEEDED
     Dates: start: 20121212

REACTIONS (5)
  - Acute kidney injury [Not Recovered/Not Resolved]
  - Chronic kidney disease [Not Recovered/Not Resolved]
  - End stage renal disease [Not Recovered/Not Resolved]
  - Dialysis [Unknown]
  - Gastrooesophageal reflux disease [Not Recovered/Not Resolved]

NARRATIVE: CASE EVENT DATE: 20121201
